FAERS Safety Report 7579905-9 (Version None)
Quarter: 2011Q2

REPORT INFORMATION
  Report Type: 
  Country: None (occurrence: None)
  Receive Date: 20110622
  Receipt Date: 20110609
  Transmission Date: 20111010
  Serious: Yes (Other)
  Sender: FDA-Public Use
  Company Number: 2011SP024197

PATIENT
  Sex: Female

DRUGS (3)
  1. CYMBALTA [Suspect]
     Indication: DEPRESSION
     Dosage: 30 MG, BID, PO
     Route: 048
     Dates: start: 20100115, end: 20101021
  2. SEROQUEL [Suspect]
     Indication: DEPRESSION
     Dosage: 25 MG, QD, PO
     Route: 048
     Dates: start: 20100830, end: 20101021
  3. MIRTAZAPINE [Suspect]
     Indication: DEPRESSION
     Dosage: 3/75 ,G. BID, PO
     Route: 048
     Dates: start: 20100506, end: 20100830

REACTIONS (2)
  - GESTATIONAL DIABETES [None]
  - DRUG EXPOSURE DURING PREGNANCY [None]
